FAERS Safety Report 15712697 (Version 1)
Quarter: 2018Q4

REPORT INFORMATION
  Report Type: Spontaneous
  Country: US (occurrence: US)
  Receive Date: 20181211
  Receipt Date: 20181211
  Transmission Date: 20190205
  Serious: No
  Sender: FDA-Public Use
  Company Number: None

PATIENT
  Age: 31 Year
  Sex: Female
  Weight: 119.25 kg

DRUGS (1)
  1. AIMOVIG [Suspect]
     Active Substance: ERENUMAB-AOOE
     Indication: MIGRAINE
     Dosage: ?          QUANTITY:140 INJECTION(S);OTHER FREQUENCY:1X MONTH;?
     Route: 058
     Dates: start: 20180821, end: 20181121

REACTIONS (3)
  - Arthralgia [None]
  - Constipation [None]
  - Fatigue [None]
